FAERS Safety Report 18255577 (Version 1)
Quarter: 2020Q3

REPORT INFORMATION
  Report Type: Report from Study
  Country: NL (occurrence: NL)
  Receive Date: 20200910
  Receipt Date: 20200910
  Transmission Date: 20201103
  Serious: Yes (Life-Threatening, Hospitalization, Other)
  Sender: FDA-Public Use
  Company Number: NVSC2020NL246597

PATIENT
  Age: 75 Year
  Sex: Female

DRUGS (1)
  1. ACLASTA [Suspect]
     Active Substance: ZOLEDRONIC ACID
     Indication: OSTEOPOROSIS
     Dosage: 1 DF (PER 52 WEEKS)
     Route: 042

REACTIONS (2)
  - Lung cancer metastatic [Recovered/Resolved with Sequelae]
  - Neoplasm malignant [Unknown]

NARRATIVE: CASE EVENT DATE: 202001
